FAERS Safety Report 5144273-9 (Version None)
Quarter: 2006Q4

REPORT INFORMATION
  Report Type: 
  Country: None (occurrence: None)
  Receive Date: 20061102
  Receipt Date: 20061102
  Transmission Date: 20070319
  Serious: Yes (Disabling)
  Sender: FDA-Public Use
  Company Number: None

PATIENT
  Age: 82 Year
  Sex: Female
  Weight: 80 kg

DRUGS (1)
  1. FLUCONAZOLE [Suspect]
     Indication: FUNGAEMIA
     Dosage: 200 MG DAILY IV
     Route: 042
     Dates: start: 20061003, end: 20061017

REACTIONS (1)
  - BLOOD BILIRUBIN INCREASED [None]
